FAERS Safety Report 4294023-3 (Version None)
Quarter: 2004Q1

REPORT INFORMATION
  Report Type: 
  Country: None (occurrence: None)
  Receive Date: 20040211
  Receipt Date: 20040126
  Transmission Date: 20041129
  Serious: Yes (Death)
  Sender: FDA-Public Use
  Company Number: US_0401100288

PATIENT
  Sex: Male

DRUGS (2)
  1. GEMCITABINE HYDROCHLORIDE-IV (GEMCITABINE) [Suspect]
     Indication: OESOPHAGEAL CARCINOMA
     Dosage: 1000 MG/M2/OTHER
  2. ANTIEMETICS [Concomitant]

REACTIONS (1)
  - CARDIAC ARREST [None]
